FAERS Safety Report 16730547 (Version 1)
Quarter: 2019Q3

REPORT INFORMATION
  Report Type: Spontaneous
  Country: US (occurrence: US)
  Receive Date: 20190822
  Receipt Date: 20190822
  Transmission Date: 20191005
  Serious: No
  Sender: FDA-Public Use
  Company Number: US-JNJFOC-20190823722

PATIENT
  Age: 52 Year
  Sex: Female
  Weight: 70.82 kg

DRUGS (3)
  1. TYLENOL [Concomitant]
     Active Substance: ACETAMINOPHEN
     Indication: PAIN
     Route: 065
  2. REMICADE [Suspect]
     Active Substance: INFLIXIMAB
     Indication: RHEUMATOID ARTHRITIS
     Route: 042
     Dates: start: 201902
  3. AMBIEN [Concomitant]
     Active Substance: ZOLPIDEM TARTRATE
     Route: 065

REACTIONS (3)
  - Product dose omission [Not Recovered/Not Resolved]
  - Vascular access complication [Unknown]
  - Off label use [Unknown]

NARRATIVE: CASE EVENT DATE: 201902
